FAERS Safety Report 13446432 (Version 1)
Quarter: 2017Q2

REPORT INFORMATION
  Report Type: Spontaneous
  Country: US (occurrence: US)
  Receive Date: 20170414
  Receipt Date: 20170414
  Transmission Date: 20170830
  Serious: Yes (Hospitalization)
  Sender: FDA-Public Use
  Company Number: None

PATIENT
  Age: 62 Year
  Sex: Female
  Weight: 71.2 kg

DRUGS (1)
  1. DOXIL [Suspect]
     Active Substance: DOXORUBICIN HYDROCHLORIDE
     Dates: end: 20170303

REACTIONS (5)
  - Pyelonephritis [None]
  - Flank pain [None]
  - Urinary tract infection [None]
  - Pyrexia [None]
  - Dysuria [None]

NARRATIVE: CASE EVENT DATE: 20170402
